FAERS Safety Report 4694984-4 (Version None)
Quarter: 2005Q2

REPORT INFORMATION
  Report Type: 
  Country: None (occurrence: None)
  Receive Date: 20050617
  Receipt Date: 20050225
  Transmission Date: 20051028
  Serious: Yes (Other)
  Sender: FDA-Public Use
  Company Number: US-2005-002821

PATIENT
  Age: 73 Year
  Sex: Female
  Weight: 59.4 kg

DRUGS (2)
  1. FLUDARA [Suspect]
     Indication: B-CELL LYMPHOMA
     Dosage: ^STANDARD DOSE^
  2. RITUXAN [Concomitant]

REACTIONS (1)
  - BONE MARROW DEPRESSION [None]
